FAERS Safety Report 6702491-X (Version None)
Quarter: 2010Q2

REPORT INFORMATION
  Report Type: 
  Country: None (occurrence: None)
  Receive Date: 20100429
  Receipt Date: 20100422
  Transmission Date: 20101027
  Serious: Yes (Hospitalization)
  Sender: FDA-Public Use
  Company Number: B0650389A

PATIENT
  Sex: Male

DRUGS (1)
  1. AUGMENTIN '125' [Suspect]
     Indication: BRONCHITIS
     Dosage: 1G PER DAY
     Route: 048
     Dates: start: 20100329, end: 20100329

REACTIONS (4)
  - DYSPNOEA [None]
  - HYPERAEMIA [None]
  - PRESYNCOPE [None]
  - TREMOR [None]
